FAERS Safety Report 7916980-3 (Version None)
Quarter: 2011Q4

REPORT INFORMATION
  Report Type: 
  Country: None (occurrence: None)
  Receive Date: 20111116
  Receipt Date: 20111116
  Transmission Date: 20120403
  Serious: Yes (Hospitalization)
  Sender: FDA-Public Use
  Company Number: None

PATIENT
  Age: 82 Year
  Sex: Female
  Weight: 52.2 kg

DRUGS (7)
  1. LACOSAMIDE [Suspect]
     Indication: CONVULSION
     Dosage: 150-200 MG
     Route: 042
     Dates: start: 20110808, end: 20110810
  2. LEVOTHYROXINE SODIUM [Concomitant]
  3. LEVALBUTEROL HCL [Concomitant]
  4. METOPROLOL [Concomitant]
  5. ENOXAPARIN [Concomitant]
  6. LISINOPRIL [Concomitant]
  7. FUROSEMIDE [Concomitant]

REACTIONS (1)
  - CONVULSION [None]
